FAERS Safety Report 8578847-X (Version None)
Quarter: 2012Q3

REPORT INFORMATION
  Report Type: 
  Country: None (occurrence: None)
  Receive Date: 20120808
  Receipt Date: 20120802
  Transmission Date: 20120928
  Serious: Yes (Death)
  Sender: FDA-Public Use
  Company Number: PHHY2012BR046398

PATIENT
  Age: 74 Year
  Sex: Female

DRUGS (4)
  1. CALCIUM [Concomitant]
     Indication: TRAUMATIC FRACTURE
     Dates: start: 20110401, end: 20120401
  2. ACETAMINOPHEN [Concomitant]
     Dosage: 1500/DAY
  3. ZOLEDRONOC ACID [Suspect]
     Indication: TRAUMATIC FRACTURE
     Dosage: 5 MG YEARLY
     Route: 042
     Dates: start: 20110301
  4. VITAMIN D [Concomitant]
     Indication: TRAUMATIC FRACTURE
     Dates: start: 20110401, end: 20120401

REACTIONS (1)
  - GASTROINTESTINAL NEOPLASM [None]
